FAERS Safety Report 7297882-5 (Version None)
Quarter: 2011Q1

REPORT INFORMATION
  Report Type: 
  Country: None (occurrence: None)
  Receive Date: 20110217
  Receipt Date: 20110211
  Transmission Date: 20110831
  Serious: Yes (Hospitalization)
  Sender: FDA-Public Use
  Company Number: US-JNJFOC-20110203922

PATIENT
  Sex: Female
  Weight: 81.65 kg

DRUGS (7)
  1. THYROID THERAPY [Concomitant]
     Indication: HYPOTHYROIDISM
     Route: 048
  2. PROZAC [Concomitant]
     Indication: NERVOUSNESS
     Route: 048
  3. AMITRIPTYLINE [Concomitant]
     Indication: MIGRAINE
     Route: 048
  4. FENTANYL-100 [Suspect]
     Dosage: NDC#0781-7244-55
     Route: 062
  5. COUMADIN [Concomitant]
     Route: 048
  6. FENTANYL-100 [Suspect]
     Indication: FIBROMYALGIA
     Route: 062
  7. COUMADIN [Concomitant]
     Indication: PULMONARY THROMBOSIS
     Route: 048

REACTIONS (8)
  - WRONG TECHNIQUE IN DRUG USAGE PROCESS [None]
  - OSTEOARTHRITIS [None]
  - ROTATOR CUFF SYNDROME [None]
  - HAEMORRHAGE [None]
  - ABDOMINAL DISCOMFORT [None]
  - PRODUCT QUALITY ISSUE [None]
  - HYPERHIDROSIS [None]
  - VOMITING [None]
